FAERS Safety Report 13500726 (Version 1)
Quarter: 2017Q2

REPORT INFORMATION
  Report Type: Spontaneous
  Country: US (occurrence: US)
  Receive Date: 20170501
  Receipt Date: 20170501
  Transmission Date: 20170830
  Serious: No
  Sender: FDA-Public Use
  Company Number: US-ACTELION-A-US2017-153231

PATIENT
  Age: 35 Year
  Sex: Female

DRUGS (1)
  1. VALCHLOR [Suspect]
     Active Substance: MECHLORETHAMINE
     Indication: PARAPSORIASIS
     Dosage: UNK
     Route: 061
     Dates: start: 20170407

REACTIONS (1)
  - Pruritus [Not Recovered/Not Resolved]
